FAERS Safety Report 8048061-5 (Version None)
Quarter: 2012Q1

REPORT INFORMATION
  Report Type: 
  Country: None (occurrence: None)
  Receive Date: 20120117
  Receipt Date: 20120109
  Transmission Date: 20120608
  Serious: No
  Sender: FDA-Public Use
  Company Number: US-BIOGENIDEC-2012BI001120

PATIENT
  Age: 65 Year
  Sex: Female

DRUGS (4)
  1. AVONEX [Suspect]
     Route: 030
  2. AVONEX [Suspect]
     Indication: MULTIPLE SCLEROSIS
     Route: 030
     Dates: start: 19970801
  3. CELEBREX [Concomitant]
     Indication: TREMOR
     Dates: start: 20070101, end: 20100101
  4. BACLOFEN [Concomitant]
     Indication: TREMOR
     Dates: start: 19970101

REACTIONS (3)
  - TREMOR [None]
  - ARTHRITIS [None]
  - COORDINATION ABNORMAL [None]
